FAERS Safety Report 10873306 (Version 2)
Quarter: 2015Q1

REPORT INFORMATION
  Report Type: Report from Study
  Country: CA (occurrence: CA)
  Receive Date: 20150227
  Receipt Date: 20150305
  Transmission Date: 20150721
  Serious: Yes (Hospitalization)
  Sender: FDA-Public Use
  Company Number: PHHY2015CA021608

PATIENT
  Sex: Female

DRUGS (2)
  1. SANDOSTATIN [Suspect]
     Active Substance: OCTREOTIDE ACETATE
     Indication: GASTROINTESTINAL NEOPLASM
     Dosage: 100 UG, TID, (CONT. 2 WEEKS AFTER 1ST LAR)
     Route: 058
     Dates: start: 20140318, end: 201404
  2. SANDOSTATIN LAR DEPOT [Suspect]
     Active Substance: OCTREOTIDE ACETATE
     Indication: GASTROINTESTINAL NEOPLASM
     Dosage: 10 MG, ONCE A MONTH (QMO)
     Route: 030
     Dates: start: 20140401, end: 20150128

REACTIONS (3)
  - Terminal state [Unknown]
  - Malignant neoplasm progression [Unknown]
  - Product use issue [Unknown]
